FAERS Safety Report 24121134 (Version 1)
Quarter: 2024Q3

REPORT INFORMATION
  Report Type: Spontaneous
  Country: CN (occurrence: CN)
  Receive Date: 20240722
  Receipt Date: 20240722
  Transmission Date: 20241017
  Serious: Yes (Hospitalization)
  Sender: MYLAN
  Company Number: CN-MYLANLABS-2024M1067420

PATIENT
  Age: 76 Year
  Sex: Female
  Weight: 50 kg

DRUGS (3)
  1. ZOLOFT [Suspect]
     Active Substance: SERTRALINE HYDROCHLORIDE
     Indication: Depression
     Dosage: 100 MILLIGRAM, QD
     Route: 048
     Dates: start: 20240625, end: 20240708
  2. OLANZAPINE [Concomitant]
     Active Substance: OLANZAPINE
     Indication: Depression
     Dosage: 1.25 MILLIGRAM, QD
     Route: 048
     Dates: start: 20240628
  3. OLANZAPINE [Concomitant]
     Active Substance: OLANZAPINE
     Dosage: 2.5 MILLIGRAM, QD
     Route: 048
     Dates: start: 20240701, end: 20240716

REACTIONS (1)
  - Pollakiuria [Recovering/Resolving]

NARRATIVE: CASE EVENT DATE: 20240708
